FAERS Safety Report 4711663-5 (Version None)
Quarter: 2005Q2

REPORT INFORMATION
  Report Type: 
  Country: None (occurrence: None)
  Receive Date: 20050629
  Receipt Date: 20050401
  Transmission Date: 20051028
  Serious: No
  Sender: FDA-Public Use
  Company Number: 05P-163-0295996-00

PATIENT
  Age: 75 Year
  Sex: Female
  Weight: 72.5755 kg

DRUGS (14)
  1. HUMIRA [Suspect]
     Indication: RHEUMATOID ARTHRITIS
     Dosage: 40 MG, 1 IN 2 WK, SUBCUTANEOUS
     Route: 058
     Dates: start: 20030801, end: 20050328
  2. PREDNISONE [Concomitant]
  3. ATENOLOL [Concomitant]
  4. FOLIC ACID [Concomitant]
  5. FUROSEMIDE [Concomitant]
  6. ASPIRIN [Concomitant]
  7. DILTIAZEM [Concomitant]
  8. OMEPRAZOLE [Concomitant]
  9. NISOLDIPINE [Concomitant]
  10. MULTI-VITAMINS [Concomitant]
  11. COSOPT [Concomitant]
  12. BRIMONIDINE TARTRATE [Concomitant]
  13. LATANOPROST [Concomitant]
  14. COMBIVENT [Concomitant]

REACTIONS (2)
  - ARTHRALGIA [None]
  - DRUG ADMINISTRATION ERROR [None]
